FAERS Safety Report 12788357 (Version 1)
Quarter: 2016Q3

REPORT INFORMATION
  Report Type: Other
  Country: DE (occurrence: DE)
  Receive Date: 20160928
  Receipt Date: 20160928
  Transmission Date: 20161109
  Serious: No
  Sender: FDA-Public Use
  Company Number: DE-LUPIN PHARMACEUTICALS INC.-E2B_00005673

PATIENT
  Age: 50 Year
  Sex: Female
  Weight: 66 kg

DRUGS (2)
  1. SIMVASTATIN. [Suspect]
     Active Substance: SIMVASTATIN
     Indication: HYPERLIPIDAEMIA
     Route: 048
     Dates: start: 2013
  2. ATORVASTATIN [Suspect]
     Active Substance: ATORVASTATIN
     Indication: HYPERLIPIDAEMIA
     Route: 048
     Dates: start: 201509, end: 201511

REACTIONS (2)
  - Nightmare [Unknown]
  - Myalgia [Unknown]

NARRATIVE: CASE EVENT DATE: 2013
